FAERS Safety Report 17780918 (Version 2)
Quarter: 2020Q2

REPORT INFORMATION
  Report Type: Spontaneous
  Country: DK (occurrence: DK)
  Receive Date: 20200514
  Receipt Date: 20200519
  Transmission Date: 20200714
  Serious: Yes (Other)
  Sender: FDA-Public Use
  Company Number: NVSC2020DK129990

PATIENT
  Age: 6 Decade
  Sex: Male

DRUGS (2)
  1. CYPROTERONE [Suspect]
     Active Substance: CYPROTERONE
     Indication: ANTIANDROGEN THERAPY
     Dosage: 300 MG, Q2WK
     Route: 030
  2. LEUPRORELIN [Suspect]
     Active Substance: LEUPROLIDE ACETATE
     Indication: ANTIANDROGEN THERAPY
     Dosage: 11.25 ?G, Q3MON
     Route: 065

REACTIONS (1)
  - Interstitial lung disease [Unknown]
